FAERS Safety Report 25447434 (Version 1)
Quarter: 2025Q2

REPORT INFORMATION
  Report Type: Spontaneous
  Country: US (occurrence: US)
  Receive Date: 20250617
  Receipt Date: 20250617
  Transmission Date: 20250717
  Serious: Yes (Life-Threatening, Hospitalization, Other)
  Sender: AMGEN
  Company Number: US-AMGEN-USASP2025116663

PATIENT
  Age: 23 Year
  Sex: Female

DRUGS (3)
  1. IVABRADINE [Suspect]
     Active Substance: IVABRADINE
     Indication: Postural orthostatic tachycardia syndrome
     Route: 065
  2. IVABRADINE [Suspect]
     Active Substance: IVABRADINE
     Indication: Off label use
  3. ATENOLOL [Suspect]
     Active Substance: ATENOLOL
     Indication: Postural orthostatic tachycardia syndrome
     Route: 065

REACTIONS (7)
  - Suicide attempt [Unknown]
  - Fatigue [Unknown]
  - Somnolence [Unknown]
  - Intentional overdose [Unknown]
  - Sinus bradycardia [Unknown]
  - Hypotension [Unknown]
  - Off label use [Unknown]
